FAERS Safety Report 7113296-2 (Version None)
Quarter: 2010Q4

REPORT INFORMATION
  Report Type: 
  Country: None (occurrence: None)
  Receive Date: 20101119
  Receipt Date: 20100722
  Transmission Date: 20110411
  Serious: No
  Sender: FDA-Public Use
  Company Number: A0869531A

PATIENT
  Age: 48 Year
  Sex: Male

DRUGS (1)
  1. WELLBUTRIN SR [Suspect]
     Indication: DEPRESSION
     Dosage: 150MG PER DAY
     Route: 048
     Dates: start: 20100505, end: 20100513

REACTIONS (3)
  - ADVERSE DRUG REACTION [None]
  - DRUG INTOLERANCE [None]
  - ENERGY INCREASED [None]
